FAERS Safety Report 5705680-6 (Version None)
Quarter: 2008Q2

REPORT INFORMATION
  Report Type: 
  Country: None (occurrence: None)
  Receive Date: 20080415
  Receipt Date: 20080408
  Transmission Date: 20081010
  Serious: Yes (Other)
  Sender: FDA-Public Use
  Company Number: FR-JNJFOC-20080203782

PATIENT
  Sex: Female
  Weight: 61 kg

DRUGS (6)
  1. RISPERDAL CONSTA [Suspect]
     Indication: SCHIZOPHRENIA
     Route: 030
  2. RISPERDAL [Suspect]
     Route: 048
  3. RISPERDAL [Suspect]
     Indication: SCHIZOPHRENIA
     Route: 048
  4. SEROPLEX [Concomitant]
     Indication: DEPRESSION
     Route: 048
  5. LYSANXIA [Concomitant]
     Indication: PSYCHOTIC DISORDER
     Route: 048
  6. TARDYFERON [Concomitant]
     Indication: IRON DEFICIENCY ANAEMIA
     Route: 048

REACTIONS (5)
  - AKATHISIA [None]
  - AKINESIA [None]
  - DYSARTHRIA [None]
  - MUSCULOSKELETAL STIFFNESS [None]
  - VISUAL DISTURBANCE [None]
